FAERS Safety Report 10569609 (Version 1)
Quarter: 2014Q4

REPORT INFORMATION
  Report Type: Report from Study
  Country: CA (occurrence: CA)
  Receive Date: 20141106
  Receipt Date: 20141106
  Transmission Date: 20150529
  Serious: Yes (Other)
  Sender: FDA-Public Use
  Company Number: CA-ABBVIE-14K-028-1302720-00

PATIENT
  Sex: Male

DRUGS (1)
  1. HUMIRA [Suspect]
     Active Substance: ADALIMUMAB
     Indication: CROHN^S DISEASE
     Route: 058
     Dates: start: 20091103

REACTIONS (4)
  - Groin pain [Recovering/Resolving]
  - Local swelling [Unknown]
  - Fat tissue increased [Not Recovered/Not Resolved]
  - Desmoid tumour [Not Recovered/Not Resolved]

NARRATIVE: CASE EVENT DATE: 2013
